FAERS Safety Report 8943196 (Version 1)
Quarter: 2012Q4

REPORT INFORMATION
  Report Type: Spontaneous
  Country: US (occurrence: None)
  Receive Date: 20121121
  Receipt Date: 20121121
  Transmission Date: 20130627
  Serious: Yes (Other)
  Sender: FDA-Public Use
  Company Number: US-1195191

PATIENT
  Age: 86 Year
  Sex: Male

DRUGS (3)
  1. PHENYLEPHRINE HYDROCHLORIDE [Suspect]
     Indication: PUPIL DILATION PROCEDURE
     Dosage: (1 DF Total OD Ophthalmic)
     Route: 047
  2. CYCLOPENTOLATE HYDROCHLORIDE [Suspect]
     Indication: PUPIL DILATION PROCEDURE
     Dosage: (1 DF Total OD Ophthalmic)
     Route: 047
  3. BSS [Concomitant]

REACTIONS (2)
  - Pupillary block [None]
  - Intraocular pressure increased [None]
